FAERS Safety Report 5014411-7 (Version None)
Quarter: 2006Q2

REPORT INFORMATION
  Report Type: 
  Country: None (occurrence: None)
  Receive Date: 20060531
  Receipt Date: 20050926
  Transmission Date: 20061013
  Serious: Yes (Hospitalization, Other)
  Sender: FDA-Public Use
  Company Number: PHEH2005US10691

PATIENT
  Age: 43 Year
  Sex: Male
  Weight: 117 kg

DRUGS (21)
  1. ZOMETA [Suspect]
     Dosage: 4 MG, QMO
     Route: 042
     Dates: start: 20021118, end: 20050301
  2. CHEMOTHERAPEUTICS,OTHER [Concomitant]
  3. PROTONIX [Concomitant]
     Dosage: 40 MG, QD
     Route: 048
  4. GLYBURIDE [Concomitant]
     Dosage: 5MG, QD
  5. GLYBURIDE [Concomitant]
     Dosage: 2.5 MG, QD
     Route: 048
  6. DOCUSATE [Concomitant]
     Dosage: 100 MG, QD
  7. CELEBREX [Concomitant]
     Dosage: 100 MG, BID
     Route: 048
  8. LIPITOR [Concomitant]
     Dosage: 20 MG, QD
     Route: 048
  9. VICODIN [Concomitant]
     Dosage: UNK, PRN
  10. METOPROLOL TARTRATE [Concomitant]
     Dosage: 50 MG, BID
     Route: 048
  11. ENALAPRIL [Concomitant]
     Dosage: 10 MG, BID
     Route: 048
  12. OXYCODONE [Concomitant]
     Dosage: 10 MG, PRN
     Route: 048
  13. SENOKOT /UNK/ [Concomitant]
  14. COLACE [Concomitant]
     Dosage: 100 MG, BID
     Route: 048
  15. PHENERGAN HCL [Concomitant]
     Dosage: 25 MG, Q6H
     Route: 042
  16. NAPROSYN [Concomitant]
     Dosage: 500 MG, BID
     Route: 048
  17. HYDROCODONE [Concomitant]
  18. RADIATION THERAPY [Concomitant]
  19. NITROGLYCERIN [Concomitant]
  20. ASPIRIN [Concomitant]
     Dosage: 325MG, QD
  21. MULTI-VITAMIN [Concomitant]

REACTIONS (61)
  - ABSCESS [None]
  - ABSCESS DRAINAGE [None]
  - ANAL FISSURE [None]
  - BLOOD GLUCOSE INCREASED [None]
  - BONE DEBRIDEMENT [None]
  - BONE DISORDER [None]
  - DIABETES MELLITUS [None]
  - DIABETES MELLITUS INADEQUATE CONTROL [None]
  - DRY SOCKET [None]
  - DYSPNOEA [None]
  - DYSPNOEA EXACERBATED [None]
  - ERYTHEMA [None]
  - FACE OEDEMA [None]
  - FACIAL PAIN [None]
  - FACIAL PALSY [None]
  - FACIAL PARESIS [None]
  - FISTULA [None]
  - GINGIVAL ABSCESS [None]
  - HAEMORRHAGE [None]
  - HEADACHE [None]
  - IMPAIRED HEALING [None]
  - INFLAMMATION [None]
  - INSOMNIA [None]
  - IVTH NERVE PARALYSIS [None]
  - IVTH NERVE PARESIS [None]
  - JAW FRACTURE [None]
  - JAW OPERATION [None]
  - LOOSE TOOTH [None]
  - LYMPHADENOPATHY [None]
  - MAJOR DEPRESSION [None]
  - MUCOUS MEMBRANE DISORDER [None]
  - MUSCLE TIGHTNESS [None]
  - NEUROPATHY PERIPHERAL [None]
  - NIGHT BLINDNESS [None]
  - ORAL INTAKE REDUCED [None]
  - OSTEITIS [None]
  - OSTEOMYELITIS [None]
  - OSTEONECROSIS [None]
  - PAIN IN JAW [None]
  - PARAESTHESIA [None]
  - PARTNER STRESS [None]
  - PERIODONTAL DISEASE [None]
  - PLASTIC SURGERY [None]
  - PRIMARY SEQUESTRUM [None]
  - PRURITUS ANI [None]
  - PURULENT DISCHARGE [None]
  - RASH ERYTHEMATOUS [None]
  - RASH MACULAR [None]
  - RECTAL HAEMORRHAGE [None]
  - SCROTAL DISORDER [None]
  - SCROTAL SWELLING [None]
  - SEQUESTRECTOMY [None]
  - SLEEP DISORDER [None]
  - STOMATITIS [None]
  - SWELLING FACE [None]
  - TOOTH DISORDER [None]
  - TOOTH EXTRACTION [None]
  - TOOTHACHE [None]
  - VIITH NERVE PARALYSIS [None]
  - WEIGHT DECREASED [None]
  - WOUND TREATMENT [None]
